FAERS Safety Report 8425025-0 (Version None)
Quarter: 2012Q2

REPORT INFORMATION
  Report Type: 
  Country: None (occurrence: None)
  Receive Date: 20120605
  Receipt Date: 20120605
  Transmission Date: 20120825
  Serious: Yes (Life-Threatening)
  Sender: FDA-Public Use
  Company Number: None

PATIENT
  Age: 55 Year
  Sex: Male
  Weight: 72 kg

DRUGS (6)
  1. VELCADE [Suspect]
     Indication: MULTIPLE MYELOMA
     Dosage: 2.6 MG SUBCUTANEOUS INJ
     Route: 058
     Dates: start: 20120508
  2. VELCADE [Suspect]
     Indication: MULTIPLE MYELOMA
     Dosage: 2.6 MG SUBCUTANEOUS INJ
     Route: 058
     Dates: start: 20120201
  3. ONDANSETRON [Concomitant]
  4. CYCLOPHOSPHAMIDE [Concomitant]
  5. ACYCLOVIR [Concomitant]
  6. DEXAMETHASONE [Concomitant]

REACTIONS (5)
  - ASTHENIA [None]
  - ACUTE RESPIRATORY DISTRESS SYNDROME [None]
  - MALAISE [None]
  - LETHARGY [None]
  - PYREXIA [None]
